FAERS Safety Report 8938012 (Version 1)
Quarter: 2012Q4

REPORT INFORMATION
  Report Type: 
  Country: ZA (occurrence: ZA)
  Receive Date: 20121203
  Receipt Date: 20121203
  Transmission Date: 20130627
  Serious: Yes (Hospitalization)
  Sender: FDA-Public Use
  Company Number: ZA-ELI_LILLY_AND_COMPANY-ZA201211007717

PATIENT
  Sex: Female

DRUGS (3)
  1. HUMALOG 25% LISPRO, 75% NPL [Suspect]
     Indication: DIABETES MELLITUS
     Dosage: 25 u, each morning
     Route: 058
     Dates: start: 201110
  2. HUMALOG 25% LISPRO, 75% NPL [Suspect]
     Dosage: 22 u, each evening
     Route: 058
     Dates: start: 201110
  3. DRUG USED IN DIABETES [Concomitant]
     Indication: DIABETES MELLITUS
     Dosage: UNK UNK, qd

REACTIONS (2)
  - Hyperglycaemia [Unknown]
  - Hyperglycaemia [Unknown]
